FAERS Safety Report 4710485-9 (Version None)
Quarter: 2005Q3

REPORT INFORMATION
  Report Type: 
  Country: None (occurrence: None)
  Receive Date: 20050707
  Receipt Date: 20050617
  Transmission Date: 20060218
  Serious: Yes (Hospitalization)
  Sender: FDA-Public Use
  Company Number: US_0506118872

PATIENT
  Age: 35 Year
  Sex: Female

DRUGS (1)
  1. CEFACLOR [Suspect]
     Indication: GINGIVITIS
     Dosage: 750 MG

REACTIONS (1)
  - SHOCK [None]
